FAERS Safety Report 6581590-X (Version None)
Quarter: 2010Q1

REPORT INFORMATION
  Report Type: 
  Country: None (occurrence: None)
  Receive Date: 20100211
  Receipt Date: 20100211
  Transmission Date: 20100710
  Serious: Yes (Other)
  Sender: FDA-Public Use
  Company Number: None

PATIENT
  Age: 19 Year
  Sex: Female
  Weight: 61.2356 kg

DRUGS (3)
  1. AMPHETAMINE SULFATE-DEXTROAMPHETAMINE SULFATE TAB [Suspect]
     Indication: NARCOLEPSY
     Dosage: 2 CAPSULES EVERY DAY PO
     Route: 048
     Dates: start: 20100129, end: 20100204
  2. AMPHETAMINE SULFATE-DEXTROAMPHETAMINE SULFATE TAB [Suspect]
     Indication: NARCOLEPSY
     Dosage: 2 CAPSULES EVERY DAY PO
     Route: 048
     Dates: start: 20100119, end: 20100125
  3. QUASENSE [Concomitant]

REACTIONS (5)
  - ANXIETY [None]
  - DRY MOUTH [None]
  - FATIGUE [None]
  - METRORRHAGIA [None]
  - PRODUCT SUBSTITUTION ISSUE [None]
